FAERS Safety Report 9971029 (Version 2)
Quarter: 2014Q1

REPORT INFORMATION
  Report Type: Report from Study
  Country: US (occurrence: US)
  Receive Date: 20140306
  Receipt Date: 20140306
  Transmission Date: 20141002
  Serious: No
  Sender: FDA-Public Use
  Company Number: US-ABBVIE-13P-163-1128958-00

PATIENT
  Age: 60 Year
  Sex: Female

DRUGS (8)
  1. HUMIRA [Suspect]
     Indication: CROHN^S DISEASE
     Dosage: DAY 1:  FOUR 40MG SC INJECS
     Route: 058
     Dates: start: 20130727
  2. SIMVASTATIN [Concomitant]
     Indication: PRODUCT USED FOR UNKNOWN INDICATION
     Dosage: 20MG DAILY
  3. TIZANIDINE [Concomitant]
     Indication: PRODUCT USED FOR UNKNOWN INDICATION
     Dosage: AT BEDTIME
  4. PREMPRO [Concomitant]
     Indication: PRODUCT USED FOR UNKNOWN INDICATION
     Dosage: DAILY
  5. AXERT [Concomitant]
     Indication: MIGRAINE
     Dosage: AS NEEDED
  6. HYDROCODONE [Concomitant]
     Indication: ABDOMINAL PAIN
     Dosage: AS NEEDED
  7. KADIAN [Concomitant]
     Indication: PAIN
     Dosage: AS NEEDED
  8. CIPROFLOXACIN [Concomitant]
     Indication: ABDOMINAL PAIN

REACTIONS (5)
  - Abnormal sensation in eye [Not Recovered/Not Resolved]
  - Feeling abnormal [Not Recovered/Not Resolved]
  - Abdominal pain [Not Recovered/Not Resolved]
  - Headache [Not Recovered/Not Resolved]
  - Migraine [Not Recovered/Not Resolved]
